FAERS Safety Report 14419388 (Version 2)
Quarter: 2018Q1

REPORT INFORMATION
  Report Type: Spontaneous
  Country: GB (occurrence: GB)
  Receive Date: 20180122
  Receipt Date: 20180208
  Transmission Date: 20180509
  Serious: Yes (Other)
  Sender: FDA-Public Use
  Company Number: GB-MYLANLABS-2017M1077447

PATIENT
  Age: 32 Year
  Sex: Female

DRUGS (2)
  1. CLOZARIL [Suspect]
     Active Substance: CLOZAPINE
     Dosage: UNK
     Route: 048
     Dates: start: 2006, end: 20171205
  2. CLOZARIL [Suspect]
     Active Substance: CLOZAPINE
     Indication: SCHIZOPHRENIA
     Dosage: UNK
     Route: 048
     Dates: start: 20050215

REACTIONS (6)
  - Neutropenia [Recovered/Resolved]
  - Malaise [Unknown]
  - Schizophrenia [Not Recovered/Not Resolved]
  - Eosinophil count decreased [Recovered/Resolved]
  - Leukopenia [Recovered/Resolved]
  - Refusal of examination [Unknown]

NARRATIVE: CASE EVENT DATE: 201711
